FAERS Safety Report 20580578 (Version 1)
Quarter: 2022Q1

REPORT INFORMATION
  Report Type: Spontaneous
  Country: US (occurrence: US)
  Receive Date: 20220311
  Receipt Date: 20220311
  Transmission Date: 20220424
  Serious: Yes (Other)
  Sender: FDA-Public Use
  Company Number: US-CELGENE-USA-20220302720

PATIENT
  Sex: Male

DRUGS (1)
  1. THALOMID [Suspect]
     Active Substance: THALIDOMIDE
     Indication: Essential thrombocythaemia
     Dosage: 50 MILLIGRAM
     Route: 048
     Dates: start: 202201

REACTIONS (1)
  - Cardiac failure [Unknown]
